FAERS Safety Report 9007784 (Version 1)
Quarter: 2013Q1

REPORT INFORMATION
  Report Type: Spontaneous
  Country: US (occurrence: US)
  Receive Date: 20130111
  Receipt Date: 20130111
  Transmission Date: 20140127
  Serious: Yes (Life-Threatening, Other)
  Sender: FDA-Public Use
  Company Number: US-009507513-1012USA00458

PATIENT
  Age: 7 Year
  Sex: Male
  Weight: 32.2 kg

DRUGS (10)
  1. SINGULAIR [Suspect]
     Dosage: 5 MG, QD
     Route: 048
     Dates: start: 20080824, end: 20091009
  2. ATROVENT [Concomitant]
     Dosage: 2 UNK, PRN
  3. ALBUTEROL SULFATE [Concomitant]
     Dosage: 2 UNK, PRN
  4. RISPERDAL [Concomitant]
     Dosage: UNK MG, UNK
     Route: 048
     Dates: start: 20081216
  5. PULMICORT RESPULES [Concomitant]
     Dosage: UNK MG, BID
     Dates: start: 2004, end: 20070608
  6. FORADIL AEROLIZER [Concomitant]
     Dosage: UNK UNK, BID
     Dates: start: 20080131, end: 20091009
  7. SYMBICORT [Concomitant]
     Dosage: 2 DF, BID
     Dates: start: 20070806
  8. VERAMYST [Concomitant]
     Dates: start: 20080101
  9. NASONEX [Concomitant]
     Route: 055
     Dates: start: 20080101
  10. NASONEX [Concomitant]
     Route: 055

REACTIONS (8)
  - Abnormal behaviour [Recovering/Resolving]
  - Depression [Recovering/Resolving]
  - Homicidal ideation [Recovering/Resolving]
  - Mental disorder [Recovering/Resolving]
  - Middle insomnia [Recovering/Resolving]
  - Nervous system disorder [Recovering/Resolving]
  - Sleep disorder [Recovering/Resolving]
  - Suicidal ideation [Recovering/Resolving]
